FAERS Safety Report 8348495-5 (Version None)
Quarter: 2012Q2

REPORT INFORMATION
  Report Type: 
  Country: None (occurrence: None)
  Receive Date: 20120509
  Receipt Date: 20120430
  Transmission Date: 20120825
  Serious: Yes (Hospitalization, Disabling, Other)
  Sender: FDA-Public Use
  Company Number: US-MERCK-1110USA02008

PATIENT
  Age: 53 Year
  Sex: Male
  Weight: 111 kg

DRUGS (3)
  1. FOSAMAX [Suspect]
     Route: 048
  2. CORTICOSTEROIDS (UNSPECIFIED) [Concomitant]
     Indication: ASTHMA
     Route: 065
     Dates: start: 19790101, end: 20080101
  3. FOSAMAX [Suspect]
     Indication: OSTEOPOROSIS
     Route: 048
     Dates: start: 20040101, end: 20110101

REACTIONS (23)
  - SCOLIOSIS [None]
  - INTERVERTEBRAL DISC CALCIFICATION [None]
  - BLOOD CHOLESTEROL INCREASED [None]
  - GAIT DISTURBANCE [None]
  - POST-TRAUMATIC PAIN [None]
  - FRACTURE DELAYED UNION [None]
  - BLEEDING TIME PROLONGED [None]
  - CARPAL TUNNEL SYNDROME [None]
  - HAND FRACTURE [None]
  - FALL [None]
  - MUSCULOSKELETAL DISORDER [None]
  - HYPERTENSION [None]
  - LIGAMENT SPRAIN [None]
  - BACK INJURY [None]
  - RHEUMATOID ARTHRITIS [None]
  - INTERVERTEBRAL DISC DEGENERATION [None]
  - FEMUR FRACTURE [None]
  - ASTHMA [None]
  - BASAL CELL CARCINOMA [None]
  - NECK INJURY [None]
  - DEPRESSION [None]
  - MUSCLE ATROPHY [None]
  - JOINT DISLOCATION [None]
